FAERS Safety Report 18367836 (Version 1)
Quarter: 2020Q4

REPORT INFORMATION
  Report Type: Spontaneous
  Country: IT (occurrence: IT)
  Receive Date: 20201009
  Receipt Date: 20201009
  Transmission Date: 20210114
  Serious: Yes (Other)
  Sender: FDA-Public Use
  Company Number: IT-JNJFOC-20200953539

PATIENT
  Sex: Female
  Weight: 63 kg

DRUGS (1)
  1. SERENASE (HALOPERIDOL) [Suspect]
     Active Substance: HALOPERIDOL
     Indication: PRODUCT USED FOR UNKNOWN INDICATION
     Route: 065
     Dates: start: 20200917, end: 20200918

REACTIONS (4)
  - Confusional state [Recovering/Resolving]
  - Oral mucosal blistering [Recovering/Resolving]
  - Waxy flexibility [Recovering/Resolving]
  - Speech disorder [Recovering/Resolving]

NARRATIVE: CASE EVENT DATE: 20200918
